FAERS Safety Report 7183039-5 (Version None)
Quarter: 2010Q4

REPORT INFORMATION
  Report Type: 
  Country: None (occurrence: None)
  Receive Date: 20101222
  Receipt Date: 20101215
  Transmission Date: 20110411
  Serious: Yes (Other)
  Sender: FDA-Public Use
  Company Number: JP-JNJFOC-20100907113

PATIENT
  Sex: Male

DRUGS (31)
  1. PREZISTA [Suspect]
     Indication: HIV INFECTION
     Route: 048
  2. PREZISTA [Suspect]
     Route: 048
  3. INTELENCE [Suspect]
     Indication: HIV INFECTION
     Route: 048
  4. INTELENCE [Suspect]
     Route: 048
  5. KALETRA [Suspect]
     Indication: HIV INFECTION
     Route: 048
  6. ZERIT [Suspect]
     Indication: HIV INFECTION
     Route: 048
  7. ZERIT [Suspect]
     Route: 048
  8. LEXIVA [Suspect]
     Indication: HIV INFECTION
     Route: 048
  9. TIPRANAVIR [Suspect]
     Indication: HIV INFECTION
     Route: 065
  10. VIDEX [Suspect]
     Indication: HIV INFECTION
     Route: 048
  11. VIDEX [Suspect]
     Route: 048
  12. VIDEX [Suspect]
     Route: 048
  13. VIDEX [Suspect]
     Route: 048
  14. VIDEX [Suspect]
     Route: 048
  15. NORVIR [Suspect]
     Indication: HIV INFECTION
     Route: 048
  16. NORVIR [Suspect]
     Route: 048
  17. NORVIR [Suspect]
     Route: 048
  18. NORVIR [Suspect]
     Route: 048
  19. NORVIR [Suspect]
     Route: 048
  20. NORVIR [Suspect]
     Route: 048
  21. TRUVADA [Concomitant]
     Indication: HIV INFECTION
     Route: 048
  22. ZIAGEN [Concomitant]
     Indication: HIV INFECTION
     Route: 048
  23. INVIRASE [Concomitant]
     Indication: HIV INFECTION
     Route: 048
  24. STOCRIN [Concomitant]
     Indication: HIV INFECTION
     Route: 048
  25. PROZEI [Concomitant]
     Indication: HIV INFECTION
     Route: 048
  26. MK-0518 [Concomitant]
     Indication: HIV INFECTION
  27. URSO 250 [Concomitant]
     Indication: LIVER DISORDER
     Route: 048
  28. EPIVIR [Concomitant]
     Indication: HIV INFECTION
     Route: 048
  29. VIRACEPT [Concomitant]
     Indication: HIV INFECTION
     Route: 048
  30. RETROVIR [Concomitant]
     Indication: HIV INFECTION
     Route: 048
  31. CROSS EIGHT M [Concomitant]
     Indication: FACTOR VIII DEFICIENCY

REACTIONS (3)
  - HYPERBILIRUBINAEMIA [None]
  - HYPERTRIGLYCERIDAEMIA [None]
  - LIVER DISORDER [None]
